FAERS Safety Report 24910803 (Version 1)
Quarter: 2025Q1

REPORT INFORMATION
  Report Type: Spontaneous
  Country: US (occurrence: None)
  Receive Date: 20250130
  Receipt Date: 20250130
  Transmission Date: 20250409
  Serious: Yes (Hospitalization)
  Sender: FDA-CTU
  Company Number: None

PATIENT
  Age: 77 Year
  Sex: Male
  Weight: 89.4 kg

DRUGS (3)
  1. RADIATION THERAPY [Suspect]
     Active Substance: RADIATION THERAPY
     Dates: start: 20241226, end: 20250129
  2. CARBOPLATIN [Suspect]
     Active Substance: CARBOPLATIN
  3. PACLITAXEL [Suspect]
     Active Substance: PACLITAXEL

REACTIONS (15)
  - Orthostatic hypotension [None]
  - Asthenia [None]
  - Decreased appetite [None]
  - Weight decreased [None]
  - Dysphagia [None]
  - Odynophagia [None]
  - Neutropenia [None]
  - Therapy interrupted [None]
  - Dizziness [None]
  - Dyspnoea exertional [None]
  - Fatigue [None]
  - Chills [None]
  - Body temperature increased [None]
  - Blood pressure decreased [None]
  - Heart rate increased [None]

NARRATIVE: CASE EVENT DATE: 20250129
